FAERS Safety Report 4690670-5 (Version None)
Quarter: 2005Q2

REPORT INFORMATION
  Report Type: 
  Country: None (occurrence: None)
  Receive Date: 20050615
  Receipt Date: 20050221
  Transmission Date: 20051028
  Serious: Yes (Other)
  Sender: FDA-Public Use
  Company Number: DE-GLAXOSMITHKLINE-D0045989A

PATIENT
  Age: 34 Year
  Sex: Female

DRUGS (1)
  1. ELMENDOS [Suspect]
     Indication: BIPOLAR DISORDER
     Dosage: 200MG PER DAY
     Route: 048
     Dates: start: 20031201

REACTIONS (4)
  - BLOOD PROLACTIN INCREASED [None]
  - BREAST PAIN [None]
  - BREAST SWELLING [None]
  - PROLACTINOMA [None]
